FAERS Safety Report 14727383 (Version 1)
Quarter: 2018Q2

REPORT INFORMATION
  Report Type: Report from Study
  Country: GB (occurrence: GB)
  Receive Date: 20180406
  Receipt Date: 20180406
  Transmission Date: 20180711
  Serious: Yes (Other)
  Sender: FDA-Public Use
  Company Number: GB-TEVA-2018-GB-878817

PATIENT
  Sex: Female

DRUGS (3)
  1. COPAXONE [Suspect]
     Active Substance: GLATIRAMER ACETATE
     Indication: MULTIPLE SCLEROSIS
     Route: 058
     Dates: start: 20170728
  2. ADACOL [Concomitant]
     Route: 065
  3. PROPANAOL [Concomitant]
     Route: 065

REACTIONS (3)
  - Overdose [Unknown]
  - Head titubation [Unknown]
  - Tremor [Unknown]

NARRATIVE: CASE EVENT DATE: 2018
